FAERS Safety Report 13028601 (Version 2)
Quarter: 2017Q1

REPORT INFORMATION
  Report Type: Spontaneous
  Country: US (occurrence: US)
  Receive Date: 20161214
  Receipt Date: 20170228
  Transmission Date: 20170428
  Serious: Yes (Hospitalization, Other)
  Sender: FDA-Public Use
  Company Number: US-SMITH AND NEPHEW, INC-2016SMT01065

PATIENT
  Age: 45 Year
  Sex: Male

DRUGS (2)
  1. UNSPECIFIED OTHER MEDICATIONS [Concomitant]
     Active Substance: UNSPECIFIED INGREDIENT
  2. REGRANEX [Suspect]
     Active Substance: BECAPLERMIN
     Indication: WOUND
     Dosage: UNK, 1X/DAY
     Route: 061
     Dates: start: 201609

REACTIONS (9)
  - Kidney transplant rejection [Unknown]
  - Oedema peripheral [Recovering/Resolving]
  - Abdominal pain lower [Recovered/Resolved]
  - Haematuria [Recovered/Resolved]
  - Osteomyelitis [Unknown]
  - Urine output decreased [Recovering/Resolving]
  - Renal failure [Recovering/Resolving]
  - Pollakiuria [Recovering/Resolving]
  - Blood creatinine increased [Recovering/Resolving]

NARRATIVE: CASE EVENT DATE: 201611
